FAERS Safety Report 13144974 (Version 1)
Quarter: 2017Q1

REPORT INFORMATION
  Report Type: Spontaneous
  Country: CH (occurrence: CH)
  Receive Date: 20170124
  Receipt Date: 20170124
  Transmission Date: 20170428
  Serious: Yes (Hospitalization)
  Sender: FDA-Public Use
  Company Number: CH-JNJFOC-20170120861

PATIENT
  Age: 88 Year
  Sex: Male
  Weight: 60.6 kg

DRUGS (7)
  1. XARELTO [Suspect]
     Active Substance: RIVAROXABAN
     Indication: PRODUCT USED FOR UNKNOWN INDICATION
     Route: 048
     Dates: start: 20161212
  2. MAGNESIOCARD CITRON [Concomitant]
     Active Substance: MAGNESIUM ASPARTATE HYDROCHLORIDE
     Route: 065
  3. PANTOZOL [Concomitant]
     Active Substance: PANTOPRAZOLE SODIUM
     Route: 065
  4. CO-DIOVAN [Concomitant]
     Active Substance: HYDROCHLOROTHIAZIDE\VALSARTAN
     Route: 065
  5. NORVASC [Concomitant]
     Active Substance: AMLODIPINE BESYLATE
     Route: 065
  6. AMIODARONE [Interacting]
     Active Substance: AMIODARONE
     Indication: PRODUCT USED FOR UNKNOWN INDICATION
     Route: 065
  7. ATORVASTATIN [Concomitant]
     Active Substance: ATORVASTATIN
     Route: 065

REACTIONS (6)
  - Visual acuity reduced [Unknown]
  - Gait disturbance [Unknown]
  - Confusional state [Recovered/Resolved]
  - Haemorrhage intracranial [Recovering/Resolving]
  - Vomiting [Recovered/Resolved]
  - Fatigue [Unknown]

NARRATIVE: CASE EVENT DATE: 20161212
